FAERS Safety Report 16012755 (Version 2)
Quarter: 2021Q2

REPORT INFORMATION
  Report Type: Spontaneous
  Country: FR (occurrence: FR)
  Receive Date: 20190227
  Receipt Date: 20210621
  Transmission Date: 20210716
  Serious: Yes (Other)
  Sender: FDA-Public Use
  Company Number: FR-CELGENEUS-FRA-20190206003

PATIENT
  Age: 64 Year
  Sex: Female
  Weight: 70 kg

DRUGS (3)
  1. KYPROLIS [Concomitant]
     Active Substance: CARFILZOMIB
     Indication: PLASMA CELL MYELOMA
     Dosage: 45.36 MILLIGRAM
     Route: 042
     Dates: start: 20180813, end: 20181227
  2. REVLIMID [Suspect]
     Active Substance: LENALIDOMIDE
     Indication: PLASMA CELL MYELOMA
     Dosage: 25 MILLIGRAM
     Route: 048
     Dates: start: 20180813
  3. NEOFORDEX [Concomitant]
     Active Substance: DEXAMETHASONE ACETATE
     Indication: PLASMA CELL MYELOMA
     Dosage: 40 MILLIGRAM
     Route: 048
     Dates: start: 20180813

REACTIONS (1)
  - Bundle branch block left [Not Recovered/Not Resolved]

NARRATIVE: CASE EVENT DATE: 20190114
